FAERS Safety Report 7181451-1 (Version None)
Quarter: 2010Q4

REPORT INFORMATION
  Report Type: 
  Country: None (occurrence: None)
  Receive Date: 20101221
  Receipt Date: 20100423
  Transmission Date: 20110411
  Serious: No
  Sender: FDA-Public Use
  Company Number: US-AMGEN-TCS408487

PATIENT

DRUGS (2)
  1. ENBREL [Suspect]
     Indication: PSORIASIS
     Dosage: 50 MG, QWK
     Route: 058
     Dates: start: 19980101
  2. UNKNOWN [Concomitant]
     Dosage: UNK UNK, UNK

REACTIONS (2)
  - POSTOPERATIVE THROMBOSIS [None]
  - VARICOSE VEIN [None]
